FAERS Safety Report 8543868-X (Version None)
Quarter: 2012Q3

REPORT INFORMATION
  Report Type: 
  Country: None (occurrence: None)
  Receive Date: 20120727
  Receipt Date: 20120720
  Transmission Date: 20120928
  Serious: Yes (Other)
  Sender: FDA-Public Use
  Company Number: PHHY2012BR063105

PATIENT
  Age: 85 Year
  Sex: Female

DRUGS (1)
  1. TEGRETOL [Suspect]
     Indication: TRIGEMINAL NEURALGIA
     Dosage: 2 DF, A DAY
     Route: 048
     Dates: start: 20110101

REACTIONS (11)
  - BREAST MASS [None]
  - ORAL MUCOSAL EXFOLIATION [None]
  - HYPERSOMNIA [None]
  - TRIGEMINAL NEURALGIA [None]
  - PLATELET COUNT DECREASED [None]
  - LABYRINTHITIS [None]
  - OEDEMA MOUTH [None]
  - LIVER DISORDER [None]
  - PAIN [None]
  - DIZZINESS [None]
  - RED BLOOD CELL ABNORMALITY [None]
